FAERS Safety Report 24777854 (Version 2)
Quarter: 2025Q1

REPORT INFORMATION
  Report Type: Spontaneous
  Country: IT (occurrence: IT)
  Receive Date: 20241226
  Receipt Date: 20250205
  Transmission Date: 20250409
  Serious: Yes (Other)
  Sender: SANOFI AVENTIS
  Company Number: IT-VELOXIS PHARMACEUTICALS, INC.-2024-VEL-00565

PATIENT
  Age: 38 Year
  Sex: Female

DRUGS (3)
  1. THYMOGLOBULIN [Suspect]
     Active Substance: LAPINE T-LYMPHOCYTE IMMUNE GLOBULIN
     Indication: Chronic kidney disease
  2. TACROLIMUS [Suspect]
     Active Substance: TACROLIMUS
     Indication: Chronic kidney disease
  3. MYCOPHENOLIC ACID [Suspect]
     Active Substance: MYCOPHENOLIC ACID
     Indication: Chronic kidney disease

REACTIONS (5)
  - Aplasia pure red cell [Recovering/Resolving]
  - Hypochromic anaemia [Recovering/Resolving]
  - Anaemia megaloblastic [Recovering/Resolving]
  - Parvovirus B19 infection [Recovering/Resolving]
  - Viraemia [Recovering/Resolving]
